FAERS Safety Report 4054453 (Version 4)
Quarter: 2012Q4

REPORT INFORMATION
  Report Type: 
  Country: US (occurrence: US)
  Receive Date: 20040105
  Receipt Date: 20121018
  Transmission Date: 20130627
  Serious: Yes (Hospitalization)
  Sender: FDA-Public Use
  Company Number: US-BRISTOL-MYERS SQUIBB COMPANY-12463832

PATIENT
  Age: 43 Year
  Sex: Male
  Weight: 73 kg

DRUGS (19)
  1. REYATAZ [Suspect]
     Indication: HIV INFECTION
     Dosage: two 200 mg capsules
     Route: 048
     Dates: start: 200308, end: 20040601
  2. CAPTOPRIL [Suspect]
  3. COUMADIN [Concomitant]
  4. PLAVIX [Concomitant]
  5. PREVACID [Concomitant]
  6. AMBIEN [Concomitant]
  7. ZERIT CAPS [Concomitant]
  8. LOPID [Concomitant]
  9. BACTRIM [Concomitant]
  10. OXYCONTIN [Concomitant]
  11. ZITHROMAX [Concomitant]
  12. ECOTRIN [Concomitant]
  13. FOLIC ACID [Concomitant]
  14. ERYTHROMYCIN [Concomitant]
  15. ABACAVIR [Concomitant]
  16. VALIUM [Concomitant]
  17. FLOVENT [Concomitant]
     Route: 055
  18. ALBUTEROL [Concomitant]
     Route: 055
  19. EPIPEN [Concomitant]

REACTIONS (8)
  - Coronary artery thrombosis [Unknown]
  - Myocardial infarction [Recovered/Resolved]
  - Drug hypersensitivity [Unknown]
  - Dyspnoea [Unknown]
  - Weight decreased [Unknown]
  - Heart rate increased [Unknown]
  - Aphagia [Unknown]
  - Chest pain [Unknown]
